FAERS Safety Report 13535380 (Version 1)
Quarter: 2017Q2

REPORT INFORMATION
  Report Type: Spontaneous
  Country: IT (occurrence: IT)
  Receive Date: 20170511
  Receipt Date: 20170511
  Transmission Date: 20170830
  Serious: Yes (Death, Hospitalization, Other)
  Sender: FDA-Public Use
  Company Number: IT-PFIZER INC-2017200326

PATIENT
  Age: 68 Year
  Sex: Female

DRUGS (5)
  1. SOLAMIN /00057301/ [Concomitant]
  2. SUTENT [Suspect]
     Active Substance: SUNITINIB MALATE
     Dosage: 50 MG, 4/2 WEEKS
     Dates: start: 20170405
  3. LANSOPRAZOLE. [Concomitant]
     Active Substance: LANSOPRAZOLE
     Dosage: 30 MG, DAILY
  4. ADENURIC [Concomitant]
     Active Substance: FEBUXOSTAT
     Dosage: 80 MG, UNK
  5. ZESTORETIC 20 [Concomitant]
     Dosage: [HYDROCHLOROTHIAZIDE 20MG/LISINOPRIL 12.5 MG]

REACTIONS (7)
  - Thrombocytopenia [Unknown]
  - Asthenia [Unknown]
  - Blood pressure increased [Unknown]
  - Seizure [Fatal]
  - Subarachnoid haemorrhage [Fatal]
  - Periorbital oedema [Unknown]
  - Malaise [Unknown]

NARRATIVE: CASE EVENT DATE: 20170421
